FAERS Safety Report 7154373-X (Version None)
Quarter: 2010Q4

REPORT INFORMATION
  Report Type: 
  Country: None (occurrence: None)
  Receive Date: 20101213
  Receipt Date: 20101130
  Transmission Date: 20110411
  Serious: Yes (Other)
  Sender: FDA-Public Use
  Company Number: DE-MYLANLABS-2010S1022347

PATIENT
  Age: 42 Year
  Sex: Female

DRUGS (4)
  1. CITALOPRAM HYDROBROMIDE [Suspect]
     Indication: DEPRESSION
     Route: 065
  2. ZOPICLONE [Suspect]
  3. LORAZEPAM [Concomitant]
     Route: 065
  4. CHLORAL HYDRATE [Concomitant]
     Route: 065

REACTIONS (7)
  - DISTURBANCE IN ATTENTION [None]
  - FEELING GUILTY [None]
  - MEMORY IMPAIRMENT [None]
  - OVERDOSE [None]
  - PSYCHOTIC DISORDER [None]
  - SUICIDAL IDEATION [None]
  - SUICIDE ATTEMPT [None]
